FAERS Safety Report 25955315 (Version 1)
Quarter: 2025Q4

REPORT INFORMATION
  Report Type: Report from Study
  Country: US (occurrence: US)
  Receive Date: 20251024
  Receipt Date: 20251024
  Transmission Date: 20260117
  Serious: Yes (Hospitalization, Other)
  Sender: IPSEN BIOPHARMACEUTICALS, INC.
  Company Number: US-IPSEN Group, Research and Development-2024-01963

PATIENT
  Age: 11 Year
  Sex: Female

DRUGS (38)
  1. ONIVYDE [Suspect]
     Active Substance: IRINOTECAN HYDROCHLORIDE
     Indication: Product used for unknown indication
     Dosage: D1 ONCE
     Route: 042
     Dates: start: 20240117
  2. ONIVYDE [Suspect]
     Active Substance: IRINOTECAN HYDROCHLORIDE
     Dosage: D1 ONCE
     Route: 042
     Dates: start: 20240312
  3. TALAZOPARIB [Suspect]
     Active Substance: TALAZOPARIB
     Indication: Product used for unknown indication
     Dosage: 600 MCG/M2, D1 BID
     Route: 048
     Dates: start: 20240117
  4. TALAZOPARIB [Suspect]
     Active Substance: TALAZOPARIB
     Dosage: D2-6
     Route: 048
  5. TALAZOPARIB [Suspect]
     Active Substance: TALAZOPARIB
     Dosage: 600 MCG/M2, D1 BID
     Route: 048
     Dates: start: 20240312
  6. TALAZOPARIB [Suspect]
     Active Substance: TALAZOPARIB
     Dosage: 600 MCG/M2, D1 BID
     Route: 048
     Dates: start: 20240312
  7. LEVOTHYROXINE [Concomitant]
     Active Substance: LEVOTHYROXINE
     Indication: Hypothyroidism
     Route: 048
  8. LEVOTHYROXINE [Concomitant]
     Active Substance: LEVOTHYROXINE
     Route: 048
  9. FAMOTIDINE [Concomitant]
     Active Substance: FAMOTIDINE
     Indication: Premedication
     Route: 048
     Dates: start: 20240118, end: 20240122
  10. FAMOTIDINE [Concomitant]
     Active Substance: FAMOTIDINE
     Route: 048
     Dates: start: 20240312, end: 20240312
  11. FAMOTIDINE [Concomitant]
     Active Substance: FAMOTIDINE
     Route: 048
     Dates: start: 20240416, end: 20240416
  12. BACTRIM [Concomitant]
     Active Substance: SULFAMETHOXAZOLE\TRIMETHOPRIM
     Indication: Prophylaxis
  13. APREPITANT [Concomitant]
     Active Substance: APREPITANT
     Indication: Nausea
     Route: 048
     Dates: start: 20240117, end: 20240119
  14. APREPITANT [Concomitant]
     Active Substance: APREPITANT
     Indication: Vomiting
     Route: 048
     Dates: start: 20240312, end: 20240312
  15. APREPITANT [Concomitant]
     Active Substance: APREPITANT
     Route: 048
     Dates: start: 20240417, end: 20240418
  16. CEFIXIME [Concomitant]
     Active Substance: CEFIXIME
     Indication: Diarrhoea
     Route: 048
     Dates: start: 20240118, end: 20240123
  17. CEFIXIME [Concomitant]
     Active Substance: CEFIXIME
     Route: 048
     Dates: start: 20240311, end: 20240319
  18. CEFIXIME [Concomitant]
     Active Substance: CEFIXIME
     Route: 048
     Dates: start: 20240416, end: 20240426
  19. DEXAMETHASONE [Concomitant]
     Active Substance: DEXAMETHASONE
     Indication: Nausea
     Route: 042
     Dates: start: 20240118, end: 20240122
  20. DEXAMETHASONE [Concomitant]
     Active Substance: DEXAMETHASONE
     Indication: Vomiting
     Route: 042
     Dates: start: 20240312, end: 20240317
  21. SCOPOLAMINE [Concomitant]
     Active Substance: SCOPOLAMINE
     Indication: Nausea
     Route: 062
  22. SCOPOLAMINE [Concomitant]
     Active Substance: SCOPOLAMINE
     Indication: Vomiting
     Route: 062
  23. PALONOSETRON [Concomitant]
     Active Substance: PALONOSETRON
     Indication: Nausea
     Route: 042
     Dates: start: 20240117, end: 20240122
  24. PALONOSETRON [Concomitant]
     Active Substance: PALONOSETRON
     Indication: Vomiting
     Route: 042
     Dates: start: 20240312, end: 20240312
  25. PALONOSETRON [Concomitant]
     Active Substance: PALONOSETRON
     Route: 042
     Dates: start: 20240319, end: 20240319
  26. PALONOSETRON [Concomitant]
     Active Substance: PALONOSETRON
     Route: 042
     Dates: start: 20240416, end: 20240423
  27. LOPERAMIDE [Concomitant]
     Active Substance: LOPERAMIDE
     Indication: Diarrhoea
     Route: 048
  28. LOPERAMIDE [Concomitant]
     Active Substance: LOPERAMIDE
     Route: 048
  29. LOPERAMIDE [Concomitant]
     Active Substance: LOPERAMIDE
     Route: 048
  30. LORAZEPAM [Concomitant]
     Active Substance: LORAZEPAM
     Indication: Nausea
  31. LORAZEPAM [Concomitant]
     Active Substance: LORAZEPAM
     Indication: Vomiting
  32. ONDANSETRON [Concomitant]
     Active Substance: ONDANSETRON
     Indication: Nausea
  33. ONDANSETRON [Concomitant]
     Active Substance: ONDANSETRON
     Indication: Vomiting
  34. DIPHENHYDRAMINE [Concomitant]
     Active Substance: DIPHENHYDRAMINE
     Indication: Premedication
     Route: 048
     Dates: start: 20240312, end: 20240312
  35. DIPHENHYDRAMINE [Concomitant]
     Active Substance: DIPHENHYDRAMINE
     Route: 048
     Dates: start: 20240416, end: 20240416
  36. PEGFILGRASTIM [Concomitant]
     Active Substance: PEGFILGRASTIM
     Indication: Prophylaxis
     Dates: start: 20240319, end: 20240319
  37. CALCIUM CARBONATE [Concomitant]
     Active Substance: CALCIUM CARBONATE
     Indication: Gastrooesophageal reflux disease
     Route: 048
  38. MEGESTROL [Concomitant]
     Active Substance: MEGESTROL
     Indication: Product use issue
     Route: 048

REACTIONS (13)
  - Abdominal pain [Not Recovered/Not Resolved]
  - Diarrhoea [Not Recovered/Not Resolved]
  - Pneumothorax [Recovered/Resolved]
  - Febrile neutropenia [Not Recovered/Not Resolved]
  - Vomiting [Not Recovered/Not Resolved]
  - Dehydration [Recovered/Resolved]
  - Nausea [Not Recovered/Not Resolved]
  - Enterocolitis infectious [Not Recovered/Not Resolved]
  - Nausea [Recovered/Resolved]
  - Dehydration [Recovered/Resolved]
  - Dehydration [Unknown]
  - Colitis [Not Recovered/Not Resolved]
  - Hyponatraemia [Not Recovered/Not Resolved]

NARRATIVE: CASE EVENT DATE: 20240126
